FAERS Safety Report 5150244-9 (Version None)
Quarter: 2006Q4

REPORT INFORMATION
  Report Type: 
  Country: None (occurrence: None)
  Receive Date: 20061109
  Receipt Date: 20061109
  Transmission Date: 20070319
  Serious: Yes (Hospitalization)
  Sender: FDA-Public Use
  Company Number: None

PATIENT
  Sex: Male

DRUGS (1)
  1. RISPERDAL [Suspect]
     Dosage: 1 MG BID PO
     Route: 048

REACTIONS (5)
  - DYSTONIA [None]
  - ELECTROCARDIOGRAM ABNORMAL [None]
  - HYPERHIDROSIS [None]
  - NAUSEA [None]
  - VOMITING [None]
